FAERS Safety Report 23731237 (Version 2)
Quarter: 2024Q2

REPORT INFORMATION
  Report Type: Spontaneous
  Country: CN (occurrence: CN)
  Receive Date: 20240411
  Receipt Date: 20240417
  Transmission Date: 20240717
  Serious: Yes (Life-Threatening, Hospitalization, Other)
  Sender: FDA-Public Use
  Company Number: CN-Accord-417935

PATIENT
  Age: 14 Year
  Sex: Female
  Weight: 29 kg

DRUGS (4)
  1. CARBOPLATIN [Suspect]
     Active Substance: CARBOPLATIN
     Indication: Intracranial germ cell tumour
     Dosage: FOR 1 CYCLE
     Dates: start: 20210104, end: 2021
  2. ETOPOSIDE [Suspect]
     Active Substance: ETOPOSIDE
     Indication: Intracranial germ cell tumour
     Dosage: 1 CYCLE
     Route: 042
     Dates: start: 20210104, end: 2021
  3. DEXAMETHASONE [Concomitant]
     Active Substance: DEXAMETHASONE
     Route: 042
  4. ETOPOSIDE [Suspect]
     Active Substance: ETOPOSIDE
     Indication: Intracranial germ cell tumour
     Dosage: 1 CYCLE
     Dates: start: 202101, end: 2021

REACTIONS (1)
  - Haemophagocytic lymphohistiocytosis [Recovered/Resolved]

NARRATIVE: CASE EVENT DATE: 20210101
